FAERS Safety Report 20901230 (Version 2)
Quarter: 2022Q2

REPORT INFORMATION
  Report Type: Report from Study
  Country: AU (occurrence: None)
  Receive Date: 20220601
  Receipt Date: 20220608
  Transmission Date: 20220721
  Serious: Yes (Other)
  Sender: FDA-Public Use
  Company Number: AU-ROCHE-3106411

PATIENT
  Age: 78 Year
  Sex: Female
  Weight: 88 kg

DRUGS (6)
  1. VEMURAFENIB [Suspect]
     Active Substance: VEMURAFENIB
     Indication: Neoplasm malignant
     Dosage: DATE OF MOST RECENT DOSE OF VEMURAFENIB (720 MG) PRIOR TO ONSET OF SAE: 16/FEB/2022
     Route: 048
     Dates: start: 20211115
  2. COBIMETINIB [Suspect]
     Active Substance: COBIMETINIB
     Indication: Neoplasm malignant
     Dosage: DATE OF MOST RECENT DOSE OF COBIMETINIB (60 MG) PRIOR TO ONSET OF SAE: 16/FEB/2022
     Route: 048
     Dates: start: 20211115
  3. LIPITOR [Concomitant]
     Active Substance: ATORVASTATIN CALCIUM
     Route: 048
     Dates: start: 20040101
  4. MICARDIS [Concomitant]
     Active Substance: TELMISARTAN
     Route: 048
     Dates: start: 20060701
  5. THYROXINE [Concomitant]
     Active Substance: LEVOTHYROXINE
     Route: 048
     Dates: start: 20070201
  6. APIXABAN [Concomitant]
     Active Substance: APIXABAN
     Route: 048
     Dates: start: 20220106

REACTIONS (1)
  - Retinopathy [Unknown]

NARRATIVE: CASE EVENT DATE: 20220217
